FAERS Safety Report 7860236-4 (Version None)
Quarter: 2011Q4

REPORT INFORMATION
  Report Type: 
  Country: None (occurrence: None)
  Receive Date: 20111026
  Receipt Date: 20111021
  Transmission Date: 20120403
  Serious: Yes (Hospitalization)
  Sender: FDA-Public Use
  Company Number: AE-1011-323

PATIENT
  Sex: Female

DRUGS (6)
  1. PREMARIN [Concomitant]
  2. TYLENOL-500 [Concomitant]
  3. HYDROCODONE BITARTRATE [Concomitant]
  4. LIDOCAINE [Suspect]
     Indication: HERPES ZOSTER
     Dosage: 1 PATCH A DAY
     Dates: start: 20111005, end: 20111008
  5. PROZAC [Concomitant]
  6. METFORMIN HCL [Concomitant]

REACTIONS (3)
  - GAIT DISTURBANCE [None]
  - BALANCE DISORDER [None]
  - LOSS OF CONSCIOUSNESS [None]
